FAERS Safety Report 4543800-X (Version None)
Quarter: 2005Q1

REPORT INFORMATION
  Report Type: 
  Country: None (occurrence: None)
  Receive Date: 20050104
  Receipt Date: 20030521
  Transmission Date: 20050727
  Serious: Yes (Hospitalization)
  Sender: FDA-Public Use
  Company Number: PL-BRISTOL-MYERS SQUIBB COMPANY-12281101

PATIENT
  Age: 61 Year
  Sex: Male

DRUGS (6)
  1. CISPLATIN [Suspect]
     Indication: NON-SMALL CELL LUNG CANCER
     Route: 042
     Dates: start: 20030416, end: 20030416
  2. PACLITAXEL [Suspect]
     Indication: NON-SMALL CELL LUNG CANCER
     Route: 042
     Dates: start: 20030416, end: 20030416
  3. KETOPROFEN [Concomitant]
     Indication: PAIN
     Route: 048
     Dates: start: 20030411, end: 20030429
  4. RANITIDINE [Concomitant]
     Indication: PROPHYLAXIS
     Route: 048
     Dates: start: 20030411
  5. ETHAMSYLATE [Concomitant]
     Indication: HAEMOPTYSIS
     Route: 048
     Dates: start: 20030402
  6. MEGESTROL [Concomitant]
     Indication: ANOREXIA
     Route: 048
     Dates: start: 20030403, end: 20030424

REACTIONS (4)
  - ANAEMIA [None]
  - ENTEROCOLITIS [None]
  - JOINT SWELLING [None]
  - LOWER RESPIRATORY TRACT INFECTION [None]
